FAERS Safety Report 8620575-6 (Version None)
Quarter: 2012Q3

REPORT INFORMATION
  Report Type: 
  Country: None (occurrence: None)
  Receive Date: 20120824
  Receipt Date: 20120815
  Transmission Date: 20120928
  Serious: Yes (Hospitalization)
  Sender: FDA-Public Use
  Company Number: US-ACTELION-A-US2012-68792

PATIENT
  Age: 32 Year
  Sex: Female

DRUGS (3)
  1. EPOPROSTENOL SODIUM [Suspect]
     Indication: PULMONARY ARTERIAL HYPERTENSION
     Dosage: 9.9 NG/KG, PER MIN
     Route: 042
     Dates: start: 20120518
  2. FUROSEMIDE [Concomitant]
  3. ASPIRIN [Concomitant]

REACTIONS (6)
  - HEADACHE [None]
  - CONDITION AGGRAVATED [None]
  - MALAISE [None]
  - INSOMNIA [None]
  - DIZZINESS [None]
  - NAUSEA [None]
